FAERS Safety Report 4351191-2 (Version None)
Quarter: 2004Q2

REPORT INFORMATION
  Report Type: 
  Country: None (occurrence: None)
  Receive Date: 20040428
  Receipt Date: 20030417
  Transmission Date: 20050107
  Serious: Yes (Other)
  Sender: FDA-Public Use
  Company Number: NSADSS2003019019

PATIENT
  Sex: Male

DRUGS (2)
  1. ULTRAM [Suspect]
     Indication: MIGRAINE
     Dosage: 400 MG DAILY
  2. ALCOHOL (ETHANOL) [Concomitant]

REACTIONS (3)
  - DRUG DEPENDENCE [None]
  - DRUG WITHDRAWAL SYNDROME [None]
  - GRAND MAL CONVULSION [None]
